FAERS Safety Report 10877790 (Version 1)
Quarter: 2015Q1

REPORT INFORMATION
  Report Type: Spontaneous
  Country: US (occurrence: None)
  Receive Date: 20150224
  Receipt Date: 20150224
  Transmission Date: 20150721
  Serious: No
  Sender: FDA-Public Use
  Company Number: None

PATIENT
  Age: 27 Year
  Sex: Female
  Weight: 63.5 kg

DRUGS (2)
  1. MONISTAT [Suspect]
     Active Substance: MICONAZOLE NITRATE
     Indication: FUNGAL INFECTION
     Dosage: 1 VAGINAL CAPSULE ONCE VAGINAL?OVERNIGHT
     Route: 067
  2. MIRENA [Concomitant]
     Active Substance: LEVONORGESTREL

REACTIONS (4)
  - Oedema genital [None]
  - Drug ineffective [None]
  - Burning sensation [None]
  - Pain [None]

NARRATIVE: CASE EVENT DATE: 20150214
